FAERS Safety Report 5653027-6 (Version None)
Quarter: 2008Q1

REPORT INFORMATION
  Report Type: 
  Country: None (occurrence: None)
  Receive Date: 20080306
  Receipt Date: 20080228
  Transmission Date: 20080703
  Serious: Yes (Other)
  Sender: FDA-Public Use
  Company Number: PHHY2008AU02478

PATIENT
  Sex: Male

DRUGS (1)
  1. EXELON [Suspect]
     Indication: DEMENTIA
     Dosage: 4.5 MG, BID
     Route: 048

REACTIONS (7)
  - DEMENTIA [None]
  - DISEASE PROGRESSION [None]
  - GASTRIC HAEMORRHAGE [None]
  - HYPERHIDROSIS [None]
  - MALAISE [None]
  - OSTEOPOROSIS [None]
  - WEIGHT INCREASED [None]
